FAERS Safety Report 4666625-3 (Version None)
Quarter: 2005Q2

REPORT INFORMATION
  Report Type: 
  Country: None (occurrence: None)
  Receive Date: 20050518
  Receipt Date: 20050506
  Transmission Date: 20051028
  Serious: Yes (Hospitalization, Other)
  Sender: FDA-Public Use
  Company Number: KII-2005-0016517

PATIENT
  Age: 45 Year
  Sex: Female

DRUGS (2)
  1. OXYCONTIN [Suspect]
     Dosage: INTRAVENOUS
     Route: 042
  2. BENZODIAZEPINE DERIVATIVES [Suspect]

REACTIONS (5)
  - COMA [None]
  - CONFUSIONAL STATE [None]
  - DRUG ABUSER [None]
  - INTENTIONAL MISUSE [None]
  - OXYGEN SATURATION DECREASED [None]
